FAERS Safety Report 4956129-2 (Version None)
Quarter: 2006Q1

REPORT INFORMATION
  Report Type: 
  Country: None (occurrence: None)
  Receive Date: 20060201
  Receipt Date: 20051021
  Transmission Date: 20060701
  Serious: No
  Sender: FDA-Public Use
  Company Number: 2005PV004355

PATIENT
  Age: 69 Year
  Sex: Female
  Weight: 75.2971 kg

DRUGS (6)
  1. BYETTA [Suspect]
     Indication: DIABETES MELLITUS NON-INSULIN-DEPENDENT
     Dosage: SEE IMAGE
     Route: 058
     Dates: start: 20051015, end: 20051018
  2. BYETTA [Suspect]
     Indication: DIABETES MELLITUS NON-INSULIN-DEPENDENT
     Dosage: SEE IMAGE
     Route: 058
     Dates: start: 20051018
  3. ACTOS [Concomitant]
  4. AMBIEN [Concomitant]
  5. AMARYL [Concomitant]
  6. KLONOPIN [Concomitant]

REACTIONS (7)
  - ABDOMINAL PAIN [None]
  - DECREASED APPETITE [None]
  - DIZZINESS [None]
  - FLATULENCE [None]
  - PARAESTHESIA [None]
  - PARAESTHESIA ORAL [None]
  - WEIGHT DECREASED [None]
